FAERS Safety Report 5357485-6 (Version None)
Quarter: 2007Q2

REPORT INFORMATION
  Report Type: 
  Country: None (occurrence: None)
  Receive Date: 20070614
  Receipt Date: 20070611
  Transmission Date: 20071010
  Serious: Yes (Hospitalization, Other)
  Sender: FDA-Public Use
  Company Number: US-BRISTOL-MYERS SQUIBB COMPANY-13810163

PATIENT
  Age: 82 Year
  Sex: Female

DRUGS (9)
  1. WARFARIN SODIUM [Suspect]
  2. ACETYLSALICYLIC ACID SRT [Suspect]
  3. ATENOLOL [Suspect]
  4. LISINOPRIL [Suspect]
  5. ISOSORBIDE MONONITRATE [Suspect]
  6. DIGOXIN [Suspect]
  7. AMLODIPINE [Suspect]
  8. MOXIFLOXACIN HCL [Suspect]
  9. SIMVASTATIN [Suspect]

REACTIONS (4)
  - DYSPNOEA EXERTIONAL [None]
  - FATIGUE [None]
  - PNEUMONIA [None]
  - TACHYCARDIA [None]
